FAERS Safety Report 9779397 (Version 1)
Quarter: 2013Q4

REPORT INFORMATION
  Report Type: Spontaneous
  Country: US (occurrence: US)
  Receive Date: 20131223
  Receipt Date: 20131223
  Transmission Date: 20140711
  Serious: No
  Sender: FDA-Public Use
  Company Number: US-TEVA-451885USA

PATIENT
  Age: 59 Year
  Sex: Female
  Weight: 81.72 kg

DRUGS (2)
  1. COPAXONE [Suspect]
     Indication: RELAPSING-REMITTING MULTIPLE SCLEROSIS
     Dates: start: 2011
  2. BACLOFEN [Concomitant]
     Indication: MUSCLE SPASMS

REACTIONS (15)
  - Presyncope [Recovered/Resolved]
  - Feeling abnormal [Unknown]
  - Blood alcohol increased [Recovered/Resolved]
  - Agitation [Recovered/Resolved]
  - Anxiety [Not Recovered/Not Resolved]
  - Flushing [Recovered/Resolved]
  - Dyspnoea [Recovered/Resolved]
  - Pain [Recovered/Resolved]
  - Depression [Not Recovered/Not Resolved]
  - Feeling abnormal [Recovered/Resolved]
  - Pain in extremity [Recovered/Resolved]
  - Musculoskeletal pain [Recovered/Resolved]
  - Flushing [Recovered/Resolved]
  - Flushing [Recovered/Resolved]
  - Flushing [Recovered/Resolved]
